FAERS Safety Report 9506399 (Version 1)
Quarter: 2013Q1

REPORT INFORMATION
  Report Type: Spontaneous
  Country: US (occurrence: None)
  Receive Date: 20130301
  Receipt Date: 20130301
  Transmission Date: 20140127
  Serious: Yes (Other)
  Sender: FDA-Public Use
  Company Number: RB-47284-2012

PATIENT
  Age: 42 Year
  Sex: Female

DRUGS (2)
  1. SUBOXONE [Suspect]
     Indication: DRUG DEPENDENCE
     Route: 060
  2. ALCOHOL [Suspect]
     Indication: SUBSTANCE USE
     Route: 048
     Dates: start: 20121127, end: 20121127

REACTIONS (7)
  - Dyspnoea [None]
  - Tremor [None]
  - Peripheral coldness [None]
  - Pallor [None]
  - Somnolence [None]
  - Vomiting [None]
  - Seizure like phenomena [None]
